FAERS Safety Report 7123645-7 (Version None)
Quarter: 2010Q4

REPORT INFORMATION
  Report Type: 
  Country: None (occurrence: None)
  Receive Date: 20101125
  Receipt Date: 20101119
  Transmission Date: 20110411
  Serious: Yes (Other)
  Sender: FDA-Public Use
  Company Number: US-BRISTOL-MYERS SQUIBB COMPANY-15389448

PATIENT
  Age: 82 Year
  Sex: Female

DRUGS (5)
  1. COUMADIN [Suspect]
     Dates: start: 20100101
  2. PLAVIX [Suspect]
  3. ASPIRIN [Suspect]
     Dosage: ENTERIC COATED
  4. DIOVAN [Concomitant]
  5. WARFARIN SODIUM [Concomitant]

REACTIONS (7)
  - BLOOD URINE PRESENT [None]
  - BREAST MASS [None]
  - DEPRESSION [None]
  - EPISTAXIS [None]
  - HAEMATOCHEZIA [None]
  - HAEMORRHAGE [None]
  - SKIN DISCOLOURATION [None]
